FAERS Safety Report 9684917 (Version 2)
Quarter: 2013Q4

REPORT INFORMATION
  Report Type: Spontaneous
  Country: AU (occurrence: AU)
  Receive Date: 20131113
  Receipt Date: 20131206
  Transmission Date: 20140711
  Serious: Yes (Other)
  Sender: FDA-Public Use
  Company Number: AU-AMGEN-AUSSP2013079010

PATIENT
  Age: 57 Year
  Sex: Female
  Weight: 90 kg

DRUGS (6)
  1. PROLIA [Suspect]
     Indication: OSTEOPOROSIS POSTMENOPAUSAL
     Dosage: 60 MG, Q6MO
     Route: 065
     Dates: start: 20130320
  2. DITROPAN [Concomitant]
     Indication: INCONTINENCE
     Dosage: 5 MG, QD
     Route: 048
     Dates: start: 2011
  3. ALDACTONE                          /00006201/ [Concomitant]
     Indication: HYPERTENSION
     Dosage: 100 MG, QD
     Route: 048
     Dates: start: 2012
  4. LYRICA [Concomitant]
     Indication: NEUROPATHY PERIPHERAL
     Dosage: 300 MG, BID
     Route: 048
     Dates: start: 201307
  5. PANADOL OSTEO [Concomitant]
     Indication: ARTHRITIS
     Dosage: 665 MG, BID
     Route: 048
     Dates: start: 2010
  6. VENLAFAXINE [Concomitant]
     Indication: DEPRESSION
     Dosage: 300 MG, QD
     Route: 048
     Dates: start: 2009

REACTIONS (8)
  - Cellulitis [Recovered/Resolved]
  - Skin discolouration [Recovered/Resolved]
  - Pyrexia [Recovered/Resolved]
  - Chills [Recovered/Resolved]
  - Local swelling [Recovered/Resolved]
  - Joint swelling [Recovered/Resolved]
  - Rash [Recovered/Resolved]
  - Incorrect route of drug administration [Unknown]
